FAERS Safety Report 18262113 (Version 23)
Quarter: 2024Q4

REPORT INFORMATION
  Report Type: Spontaneous
  Country: CA (occurrence: CA)
  Receive Date: 20200914
  Receipt Date: 20241014
  Transmission Date: 20250115
  Serious: Yes (Hospitalization, Other)
  Sender: PFIZER
  Company Number: CA-PFIZER INC-2020346403

PATIENT
  Age: 36 Year
  Sex: Female

DRUGS (39)
  1. LANSOPRAZOLE [Suspect]
     Active Substance: LANSOPRAZOLE
     Dosage: UNK
     Route: 065
  2. LANSOPRAZOLE [Suspect]
     Active Substance: LANSOPRAZOLE
     Dosage: UNK
  3. MORPHINE SULFATE [Suspect]
     Active Substance: MORPHINE SULFATE
     Dosage: UNK
     Route: 065
  4. BUPIVACAINE HYDROCHLORIDE [Suspect]
     Active Substance: BUPIVACAINE HYDROCHLORIDE
     Indication: Induction of anaesthesia
     Dosage: 1 MILLILITER
     Route: 037
  5. BUPIVACAINE HYDROCHLORIDE [Suspect]
     Active Substance: BUPIVACAINE HYDROCHLORIDE
     Indication: Epidural anaesthesia
  6. EPINEPHRINE [Suspect]
     Active Substance: EPINEPHRINE
     Dosage: UNK
     Route: 065
  7. EPINEPHRINE [Suspect]
     Active Substance: EPINEPHRINE
     Dosage: UNK
     Route: 008
  8. FENTANYL CITRATE [Suspect]
     Active Substance: FENTANYL CITRATE
     Indication: Induction of anaesthesia
     Dosage: 15 MICROGRAM (NASAL SPRAY, SOLUTION)
     Route: 037
  9. FENTANYL CITRATE [Suspect]
     Active Substance: FENTANYL CITRATE
     Indication: Epidural anaesthesia
     Dosage: UNK (NASAL SPRAY, SOLUTION)
     Route: 037
  10. FENTANYL [Suspect]
     Active Substance: FENTANYL
     Indication: Induction of anaesthesia
     Dosage: 15 UG
     Route: 037
  11. PHENYLEPHRINE HYDROCHLORIDE [Suspect]
     Active Substance: PHENYLEPHRINE HYDROCHLORIDE
     Dosage: UNK
     Route: 065
  12. ASPIRIN [Suspect]
     Active Substance: ASPIRIN
     Dosage: UNK
     Route: 065
  13. ASPIRIN [Suspect]
     Active Substance: ASPIRIN
     Dosage: UNK
     Route: 065
  14. AZATHIOPRINE [Suspect]
     Active Substance: AZATHIOPRINE
     Indication: Antisynthetase syndrome
     Dosage: UNK
     Route: 065
  15. LACTATED RINGERS SOLUTION [Suspect]
     Active Substance: CALCIUM CHLORIDE\POTASSIUM CHLORIDE\SODIUM CHLORIDE\SODIUM LACTATE
     Dosage: UNK
     Route: 065
  16. CARBETOCIN [Suspect]
     Active Substance: CARBETOCIN
     Dosage: 100 MICROGRAM
     Route: 065
  17. ESCITALOPRAM [Suspect]
     Active Substance: ESCITALOPRAM OXALATE
     Dosage: UNK
     Route: 065
  18. LIDOCAINE [Suspect]
     Active Substance: LIDOCAINE
     Dosage: 5 MILLILITER
     Route: 008
  19. LIDOCAINE [Suspect]
     Active Substance: LIDOCAINE
     Dosage: UNK
     Route: 061
  20. METHYLDOPA [Suspect]
     Active Substance: METHYLDOPA
     Dosage: UNK
     Route: 065
  21. ALBUTEROL SULFATE [Suspect]
     Active Substance: ALBUTEROL SULFATE
     Dosage: UNK
     Route: 065
  22. TACROLIMUS [Suspect]
     Active Substance: TACROLIMUS
     Dosage: UNK
     Route: 065
  23. TINZAPARIN [Suspect]
     Active Substance: TINZAPARIN
     Dosage: UNK
     Route: 065
  24. TINZAPARIN [Suspect]
     Active Substance: TINZAPARIN
     Dosage: UNK
     Route: 065
  25. MORPHINE HYDROCHLORIDE [Suspect]
     Active Substance: MORPHINE HYDROCHLORIDE
     Dosage: UNK
     Route: 065
  26. LANSOPRAZOLE [Suspect]
     Active Substance: LANSOPRAZOLE
     Dosage: UNK
     Route: 065
  27. ESCITALOPRAM OXALATE [Suspect]
     Active Substance: ESCITALOPRAM OXALATE
     Dosage: UNK
     Route: 065
  28. ALBUTEROL SULFATE [Suspect]
     Active Substance: ALBUTEROL SULFATE
     Dosage: UNK
     Route: 065
  29. ALBUTEROL SULFATE [Suspect]
     Active Substance: ALBUTEROL SULFATE
     Dosage: UNK
     Route: 065
  30. CALCIUM CHLORIDE\POTASSIUM CHLORIDE\SODIUM LACTATE [Suspect]
     Active Substance: CALCIUM CHLORIDE\POTASSIUM CHLORIDE\SODIUM LACTATE
     Dosage: UNK
     Route: 065
  31. TINZAPARIN SODIUM [Suspect]
     Active Substance: TINZAPARIN SODIUM
     Dosage: UNK
     Route: 065
  32. ASPIRIN [Suspect]
     Active Substance: ASPIRIN
     Indication: Prophylaxis
     Dosage: UNK
     Route: 065
  33. ASPIRIN [Suspect]
     Active Substance: ASPIRIN
     Indication: Pre-eclampsia
  34. HUMAN IMMUNOGLOBULIN G [Suspect]
     Active Substance: HUMAN IMMUNOGLOBULIN G
     Indication: Antisynthetase syndrome
     Dosage: UNK
     Route: 042
  35. PREDNISONE [Suspect]
     Active Substance: PREDNISONE
     Indication: Antisynthetase syndrome
     Dosage: 20 MILLIGRAM, QD
     Route: 065
  36. PREDNISONE [Suspect]
     Active Substance: PREDNISONE
     Dosage: UNK UNK, QD
     Route: 065
  37. HYDROXYCHLOROQUINE [Suspect]
     Active Substance: HYDROXYCHLOROQUINE
     Indication: Antisynthetase syndrome
     Dosage: UNK, 1X/DAY
     Route: 065
  38. LIDOCAINE/NOREPINEPHRINE [Concomitant]
     Dosage: UNK
     Route: 065
  39. INSULIN ASPART [Concomitant]
     Active Substance: INSULIN ASPART
     Indication: Gestational diabetes
     Dosage: UNK
     Route: 065

REACTIONS (4)
  - Maternal exposure during pregnancy [Unknown]
  - Anxiety [Unknown]
  - Dyspnoea [Unknown]
  - Off label use [Unknown]
